FAERS Safety Report 8904550 (Version 1)
Quarter: 2012Q4

REPORT INFORMATION
  Report Type: 
  Country: GB (occurrence: GB)
  Receive Date: 20121113
  Receipt Date: 20121113
  Transmission Date: 20130627
  Serious: Yes (Other)
  Sender: FDA-Public Use
  Company Number: GB-ELI_LILLY_AND_COMPANY-GB201211000066

PATIENT
  Age: 83 Year

DRUGS (8)
  1. OLANZAPINE [Suspect]
     Dosage: 20 mg, UNK
  2. OLANZAPINE [Suspect]
     Dosage: 10 mg, UNK
  3. CIPROFLOXACIN [Concomitant]
     Indication: URINARY TRACT INFECTION
     Dosage: 500 mg, bid
     Route: 048
  4. MACROGOL [Concomitant]
     Dosage: 10 g, bid
     Route: 048
  5. OMEPRAZOLE [Concomitant]
     Dosage: 20 g, qd
  6. PARACETAMOL [Concomitant]
     Dosage: 1000 mg, prn
  7. SALBUTAMOL [Concomitant]
     Dosage: 100 ug, other
     Route: 055
  8. TIOTROPIUM BROMIDE [Concomitant]
     Dosage: 18 ug, qd
     Route: 050

REACTIONS (2)
  - Extrapyramidal disorder [Not Recovered/Not Resolved]
  - Muscle atrophy [Not Recovered/Not Resolved]
